FAERS Safety Report 9592858 (Version 3)
Quarter: 2013Q4

REPORT INFORMATION
  Report Type: Spontaneous
  Country: CO (occurrence: None)
  Receive Date: 20131002
  Receipt Date: 20131023
  Transmission Date: 20140711
  Serious: Yes (Death)
  Sender: FDA-Public Use
  Company Number: CO-JNJFOC-20130914103

PATIENT
  Age: 68 Year
  Sex: Male

DRUGS (1)
  1. DACOGEN (DECITABINE) LYOPHILIZED POWDER [Suspect]
     Indication: MYELODYSPLASTIC SYNDROME

REACTIONS (4)
  - Chest pain [None]
  - Haemoglobin decreased [None]
  - Breath sounds abnormal [None]
  - Cardio-respiratory arrest [None]
